FAERS Safety Report 6764752-8 (Version None)
Quarter: 2010Q2

REPORT INFORMATION
  Report Type: 
  Country: None (occurrence: None)
  Receive Date: 20100610
  Receipt Date: 20100528
  Transmission Date: 20101027
  Serious: Yes (Other)
  Sender: FDA-Public Use
  Company Number: GB-ASTRAZENECA-2010SE24792

PATIENT
  Age: 17 Year
  Sex: Male

DRUGS (16)
  1. SEROQUEL XR [Suspect]
     Indication: BIPOLAR DISORDER
     Route: 048
     Dates: start: 20100513, end: 20100513
  2. SEROQUEL XR [Suspect]
     Indication: DEPRESSION
     Route: 048
     Dates: start: 20100513, end: 20100513
  3. SEROQUEL XR [Suspect]
     Route: 048
     Dates: start: 20100514, end: 20100514
  4. SEROQUEL XR [Suspect]
     Route: 048
     Dates: start: 20100514, end: 20100514
  5. SEROQUEL XR [Suspect]
     Route: 048
     Dates: start: 20100515, end: 20100515
  6. SEROQUEL XR [Suspect]
     Route: 048
     Dates: start: 20100515, end: 20100515
  7. SEROQUEL XR [Suspect]
     Route: 048
     Dates: start: 20100516, end: 20100516
  8. SEROQUEL XR [Suspect]
     Route: 048
     Dates: start: 20100516, end: 20100516
  9. SEROQUEL XR [Suspect]
     Route: 048
     Dates: start: 20100517, end: 20100520
  10. SEROQUEL XR [Suspect]
     Route: 048
     Dates: start: 20100517, end: 20100520
  11. DUAC [Concomitant]
  12. FLUOXETINE [Concomitant]
  13. MELATONIN [Concomitant]
  14. MINOCYCLINE HCL [Concomitant]
  15. PROCYCLIDINE HYDROCHLORIDE [Concomitant]
  16. VALPROATE SODIUM [Concomitant]

REACTIONS (3)
  - CONVULSION [None]
  - EYE ROLLING [None]
  - MUSCULOSKELETAL STIFFNESS [None]
